FAERS Safety Report 15777274 (Version 1)
Quarter: 2018Q4

REPORT INFORMATION
  Report Type: Spontaneous
  Country: US (occurrence: US)
  Receive Date: 20181231
  Receipt Date: 20181231
  Transmission Date: 20190205
  Serious: No
  Sender: FDA-Public Use
  Company Number: US-CLOVIS ONCOLOGY-CLO-2018-001420

PATIENT
  Sex: Female

DRUGS (2)
  1. RUBRACA [Suspect]
     Active Substance: RUCAPARIB CAMSYLATE
     Indication: OVARIAN CANCER
     Dosage: 600 MG, BID
     Route: 065
     Dates: start: 201803, end: 2018
  2. RUBRACA [Suspect]
     Active Substance: RUCAPARIB CAMSYLATE
     Dosage: 500 MG, BID
     Route: 065
     Dates: start: 2018, end: 201808

REACTIONS (1)
  - Haemoglobin decreased [Unknown]

NARRATIVE: CASE EVENT DATE: 2018
